FAERS Safety Report 21365228 (Version 1)
Quarter: 2022Q3

REPORT INFORMATION
  Report Type: Spontaneous
  Country: US (occurrence: None)
  Receive Date: 20220921
  Receipt Date: 20220921
  Transmission Date: 20221026
  Serious: Yes (Hospitalization)
  Sender: FDA-Public Use
  Company Number: None

PATIENT
  Age: 43 Year
  Sex: Female

DRUGS (10)
  1. NUCALA [Suspect]
     Active Substance: MEPOLIZUMAB
     Indication: Asthma
     Dosage: OTHER FREQUENCY : EVERY 28 DAYS;?
     Route: 058
     Dates: start: 20220222
  2. CAYSTON INH [Concomitant]
  3. FLUTICASONE SPR [Concomitant]
  4. HYPERSAL NEB [Concomitant]
  5. PARI PRONEB MAX LC PLUS [Concomitant]
  6. PULMOZYME NEG [Concomitant]
  7. SOD CHL NEB [Concomitant]
  8. TOBRAMYCIN [Concomitant]
     Active Substance: TOBRAMYCIN
  9. VITAMIN D CAP [Concomitant]
  10. VITAMIN D2 CAP [Concomitant]

REACTIONS (1)
  - Seizure [None]

NARRATIVE: CASE EVENT DATE: 20220827
